FAERS Safety Report 9613935 (Version 5)
Quarter: 2013Q4

REPORT INFORMATION
  Report Type: Spontaneous
  Country: JP (occurrence: JP)
  Receive Date: 20131011
  Receipt Date: 20131210
  Transmission Date: 20140711
  Serious: Yes (Hospitalization, Other)
  Sender: FDA-Public Use
  Company Number: JP-PFIZER INC-2013155362

PATIENT
  Age: 63 Year
  Sex: Female
  Weight: 47.6 kg

DRUGS (10)
  1. CELECOX [Suspect]
     Indication: ANTIPYRESIS
     Dosage: 100 MG, 2X/DAY
     Route: 048
     Dates: start: 20130325, end: 20130419
  2. CELECOX [Suspect]
     Indication: PAIN
  3. LIPITOR [Suspect]
     Indication: HYPERLIPIDAEMIA
     Dosage: 10 MG, 1X/DAY
     Route: 048
     Dates: end: 20130419
  4. TEGRETOL [Suspect]
     Indication: ANALGESIC THERAPY
     Dosage: 200 MG, 1X/DAY
     Route: 048
     Dates: start: 20130403, end: 20130419
  5. TEGRETOL [Suspect]
     Indication: TRIGEMINAL NEURALGIA
  6. CALONAL [Suspect]
     Indication: ANTIPYRESIS
     Dosage: 200 MG, 2X/DAY
     Route: 048
     Dates: start: 20130322, end: 20130325
  7. CONSTAN [Suspect]
     Indication: INSOMNIA
     Dosage: 0.4 MG, 1X/DAY
     Route: 048
     Dates: start: 20130322, end: 20130419
  8. TRAMACET [Suspect]
     Indication: ANALGESIC THERAPY
     Dosage: 1 DF, 3X/DAY
     Route: 048
     Dates: start: 20130325, end: 20130419
  9. EDIROL [Suspect]
     Indication: OSTEOPOROSIS
     Dosage: 0.75 UG, 1X/DAY
     Route: 048
     Dates: start: 201209, end: 20130419
  10. PROTECADIN [Suspect]
     Indication: GASTRITIS
     Dosage: 5 MG, 2X/DAY
     Route: 048
     Dates: start: 20130325, end: 20130419

REACTIONS (3)
  - Off label use [Unknown]
  - Stevens-Johnson syndrome [Recovering/Resolving]
  - Headache [Recovering/Resolving]
